FAERS Safety Report 17295882 (Version 11)
Quarter: 2021Q1

REPORT INFORMATION
  Report Type: Spontaneous
  Country: US (occurrence: US)
  Receive Date: 20200121
  Receipt Date: 20210209
  Transmission Date: 20210419
  Serious: Yes (Death, Hospitalization, Other)
  Sender: FDA-Public Use
  Company Number: US-PFIZER INC-2020026586

PATIENT
  Age: 88 Year
  Sex: Female

DRUGS (4)
  1. BOSULIF [Suspect]
     Active Substance: BOSUTINIB MONOHYDRATE
     Indication: CHRONIC MYELOID LEUKAEMIA
     Dosage: 200 MG, DAILY
     Dates: start: 20190831
  2. BOSULIF [Suspect]
     Active Substance: BOSUTINIB MONOHYDRATE
     Indication: THROMBOCYTOPENIA
     Dosage: 1 DF, DAILY(CURRENTLY TAKING ONE TABLET DAILY, IN THE PM, WITH FOOD)
  3. BOSULIF [Suspect]
     Active Substance: BOSUTINIB MONOHYDRATE
     Dosage: 100 MG (EVERY THIRD DAY) (EVERY 3RD DAY)
     Route: 048
     Dates: start: 20190831, end: 20210202
  4. BOSULIF [Suspect]
     Active Substance: BOSUTINIB MONOHYDRATE
     Indication: BREAST CANCER FEMALE
     Dosage: 100 MG, DAILY
     Dates: start: 20190828

REACTIONS (7)
  - Death [Fatal]
  - Oxygen saturation abnormal [Unknown]
  - COVID-19 [Unknown]
  - Pleural effusion [Unknown]
  - Haemoglobin abnormal [Unknown]
  - Dizziness [Unknown]
  - Intentional product misuse [Unknown]

NARRATIVE: CASE EVENT DATE: 201912
